FAERS Safety Report 6230835-4 (Version None)
Quarter: 2009Q2

REPORT INFORMATION
  Report Type: 
  Country: None (occurrence: None)
  Receive Date: 20090616
  Receipt Date: 20090604
  Transmission Date: 20091009
  Serious: No
  Sender: FDA-Public Use
  Company Number: CA-PFIZER INC-2009177428

PATIENT
  Age: 61 Year

DRUGS (18)
  1. PREDNISONE [Suspect]
     Indication: PROSTATE CANCER
     Dosage: 5 MG, 2X/DAY
     Route: 048
     Dates: start: 20090117, end: 20090301
  2. BLINDED *PLACEBO [Suspect]
     Indication: PROSTATE CANCER
     Dosage: 37.5 MG, 1X/DAY
     Route: 048
     Dates: start: 20090117, end: 20090306
  3. BLINDED SUNITINIB MALATE [Suspect]
     Indication: PROSTATE CANCER
     Dosage: 37.5 MG, 1X/DAY
     Route: 048
     Dates: start: 20090117, end: 20090306
  4. SUPEUDOL [Concomitant]
     Indication: PAIN
     Dosage: UNK
  5. PROCHLORPERAZINE [Concomitant]
     Indication: ANTIEMETIC SUPPORTIVE CARE
     Dosage: UNK
  6. COLACE [Concomitant]
     Dosage: UNK
  7. EFFEXOR XR [Concomitant]
     Indication: HOT FLUSH
     Dosage: UNK
  8. HYDROCHLOROTHIAZIDE [Concomitant]
     Indication: DIURETIC THERAPY
     Dosage: UNK
  9. ASAPHEN [Concomitant]
     Indication: ANTICOAGULANT THERAPY
     Dosage: UNK
  10. DESYREL [Concomitant]
     Indication: SEDATIVE THERAPY
     Dosage: UNK
  11. CRESTOR [Concomitant]
     Indication: HYPERCHOLESTEROLAEMIA
     Dosage: UNK
  12. ZOLADEX [Concomitant]
     Indication: HORMONE THERAPY
     Dosage: UNK
  13. RIVOTRIL [Concomitant]
     Indication: ANXIETY
     Dosage: UNK
  14. ZOMETA [Concomitant]
     Indication: PROPHYLAXIS
     Dosage: UNK
  15. LOPRESOR [Concomitant]
     Indication: HYPERTENSION
     Dosage: UNK
  16. GRAVOL TAB [Concomitant]
     Indication: NAUSEA
     Dosage: UNK
  17. DIFLUCAN [Concomitant]
     Indication: ANTIFUNGAL TREATMENT
     Dosage: UNK
  18. LOPROX [Concomitant]
     Indication: ANTIFUNGAL TREATMENT
     Dosage: UNK

REACTIONS (1)
  - HYPOTENSION [None]
